FAERS Safety Report 16019674 (Version 1)
Quarter: 2019Q1

REPORT INFORMATION
  Report Type: Spontaneous
  Country: US (occurrence: US)
  Receive Date: 20190228
  Receipt Date: 20190228
  Transmission Date: 20190418
  Serious: No
  Sender: FDA-Public Use
  Company Number: US-VIFOR (INTERNATIONAL) INC.-VIT-2019-01294

PATIENT
  Age: 35 Year
  Sex: Female
  Weight: 108 kg

DRUGS (2)
  1. MIRCERA [Suspect]
     Active Substance: METHOXY POLYETHYLENE GLYCOL-EPOETIN BETA
     Indication: PRODUCT USED FOR UNKNOWN INDICATION
     Dosage: FIRST DOSE
  2. MIRCERA [Suspect]
     Active Substance: METHOXY POLYETHYLENE GLYCOL-EPOETIN BETA
     Dosage: SECOND DOSE
     Dates: start: 201511

REACTIONS (5)
  - Mood swings [Unknown]
  - Anger [Unknown]
  - Feeling abnormal [Unknown]
  - Delusion [Unknown]
  - Homicidal ideation [Unknown]

NARRATIVE: CASE EVENT DATE: 20151104
